FAERS Safety Report 19218531 (Version 2)
Quarter: 2021Q2

REPORT INFORMATION
  Report Type: Report from Study
  Country: DE (occurrence: DE)
  Receive Date: 20210505
  Receipt Date: 20210517
  Transmission Date: 20210717
  Serious: Yes (Other)
  Sender: FDA-Public Use
  Company Number: DE-BRISTOL-MYERS SQUIBB COMPANY-BMS-2020-113203

PATIENT
  Sex: Male

DRUGS (7)
  1. RAMIPRIL. [Concomitant]
     Active Substance: RAMIPRIL
     Indication: CEREBROVASCULAR DISORDER
  2. ASPIRIN. [Concomitant]
     Active Substance: ASPIRIN
     Indication: CEREBROVASCULAR DISORDER
  3. SIMVASTATIN. [Concomitant]
     Active Substance: SIMVASTATIN
     Indication: CEREBROVASCULAR DISORDER
     Dosage: 20 MILLIGRAM
     Route: 065
  4. ASPIRIN. [Concomitant]
     Active Substance: ASPIRIN
     Indication: CARDIOVASCULAR DISORDER
     Dosage: 100 MILLIGRAM
     Route: 065
  5. RAMIPRIL. [Concomitant]
     Active Substance: RAMIPRIL
     Indication: CARDIOVASCULAR DISORDER
     Dosage: 5 MILLIGRAM
     Route: 065
  6. NIVOLUMAB [Suspect]
     Active Substance: NIVOLUMAB
     Indication: SQUAMOUS CELL CARCINOMA OF HEAD AND NECK
     Dosage: 240 MILLIGRAM, Q2WK
     Route: 042
     Dates: start: 20200819, end: 20201029
  7. SIMVASTATIN. [Concomitant]
     Active Substance: SIMVASTATIN
     Indication: CARDIOVASCULAR DISORDER

REACTIONS (2)
  - Immune-mediated lung disease [Not Recovered/Not Resolved]
  - Aspergillus infection [Not Recovered/Not Resolved]

NARRATIVE: CASE EVENT DATE: 20201029
